FAERS Safety Report 5100734-X (Version None)
Quarter: 2006Q3

REPORT INFORMATION
  Report Type: 
  Country: None (occurrence: None)
  Receive Date: 20060906
  Receipt Date: 20060823
  Transmission Date: 20061208
  Serious: Yes (Hospitalization)
  Sender: FDA-Public Use
  Company Number: US-2005-025313

PATIENT
  Age: 24 Year
  Sex: Female
  Weight: 73.5 kg

DRUGS (1)
  1. YASMIN [Suspect]
     Indication: MENSTRUATION IRREGULAR
     Dosage: 1 TAB (S), 1X/DAY, ORAL
     Route: 048
     Dates: start: 20041201, end: 20051119

REACTIONS (11)
  - ANTIPHOSPHOLIPID ANTIBODIES POSITIVE [None]
  - APHASIA [None]
  - BRAIN OEDEMA [None]
  - CEREBRAL HAEMORRHAGE [None]
  - CEREBRAL INFARCTION [None]
  - CONFUSIONAL STATE [None]
  - HAEMORRHAGE INTRACRANIAL [None]
  - HEADACHE [None]
  - INTRACRANIAL VENOUS SINUS THROMBOSIS [None]
  - SYSTEMIC LUPUS ERYTHEMATOSUS [None]
  - VENOUS OCCLUSION [None]
